FAERS Safety Report 7716641-X (Version None)
Quarter: 2011Q3

REPORT INFORMATION
  Report Type: 
  Country: None (occurrence: None)
  Receive Date: 20110829
  Receipt Date: 20110818
  Transmission Date: 20111222
  Serious: Yes (Other)
  Sender: FDA-Public Use
  Company Number: CA-JNJFOC-20110809600

PATIENT
  Sex: Male
  Weight: 83 kg

DRUGS (7)
  1. ASPIRIN [Concomitant]
     Route: 048
  2. ATACAND [Concomitant]
     Route: 048
  3. COLCHICINE [Concomitant]
     Route: 048
  4. ADALAT [Concomitant]
     Route: 048
  5. CRESTOR [Concomitant]
     Route: 048
  6. METFORMIN HYDROCHLORIDE [Concomitant]
     Route: 048
  7. REMICADE [Suspect]
     Indication: PSORIASIS
     Dosage: 100MG/VIAL
     Route: 042
     Dates: start: 20110101

REACTIONS (1)
  - PROSTATE CANCER [None]
